FAERS Safety Report 8380845-6 (Version None)
Quarter: 2012Q2

REPORT INFORMATION
  Report Type: 
  Country: None (occurrence: None)
  Receive Date: 20120430
  Receipt Date: 20120419
  Transmission Date: 20120825
  Serious: Yes (Life-Threatening, Hospitalization)
  Sender: FDA-Public Use
  Company Number: 2012032053

PATIENT
  Age: 81 Year
  Sex: Female
  Weight: 53.5244 kg

DRUGS (12)
  1. HIZENTRA [Suspect]
     Indication: IMMUNODEFICIENCY COMMON VARIABLE
     Dosage: (11 G 1X/WEEK, 55 ML IN 4 SITES OVER 1-2 HOURS SUBCUTANEOUS)
     Route: 058
     Dates: start: 20101220
  2. LMX (LIDOCAINE HYDROCHLORIDE) [Concomitant]
  3. NIFEDIPINE [Concomitant]
  4. MELOXICAM [Concomitant]
  5. BYSTOLIC [Concomitant]
  6. FUROSEMIDE [Concomitant]
  7. PREVACID [Concomitant]
  8. DIGOXIN [Concomitant]
  9. ASPIRIN [Concomitant]
  10. CENTRUM SILVER (CENTRUM SILVER) [Concomitant]
  11. CALCIUM CARBONATE [Concomitant]
  12. SIMVASTATIN [Concomitant]

REACTIONS (1)
  - CEREBROVASCULAR ACCIDENT [None]
